FAERS Safety Report 7184781-2 (Version None)
Quarter: 2010Q4

REPORT INFORMATION
  Report Type: 
  Country: None (occurrence: None)
  Receive Date: 20101222
  Receipt Date: 20100525
  Transmission Date: 20110411
  Serious: No
  Sender: FDA-Public Use
  Company Number: US-AMGEN-KDL413639

PATIENT

DRUGS (5)
  1. ENBREL [Suspect]
     Indication: PSORIATIC ARTHROPATHY
     Dosage: 50 MG, QWK
     Route: 058
     Dates: start: 20100512
  2. ENBREL [Suspect]
     Indication: PSORIASIS
  3. SIMVASTATIN [Concomitant]
     Dosage: UNK UNK, UNK
     Dates: start: 20091222
  4. PREDNISONE [Concomitant]
     Dosage: UNK UNK, UNK
     Dates: start: 20091230
  5. ATENOLOL [Concomitant]
     Dosage: UNK UNK, UNK
     Dates: start: 20091222

REACTIONS (5)
  - DYSPHONIA [None]
  - FATIGUE [None]
  - INFLUENZA LIKE ILLNESS [None]
  - OROPHARYNGEAL PAIN [None]
  - POLLAKIURIA [None]
